FAERS Safety Report 11110536 (Version 2)
Quarter: 2015Q2

REPORT INFORMATION
  Report Type: Spontaneous
  Country: US (occurrence: US)
  Receive Date: 20150513
  Receipt Date: 20150611
  Transmission Date: 20150821
  Serious: Yes (Other)
  Sender: FDA-Public Use
  Company Number: US-PFIZER INC-2015159872

PATIENT
  Age: 59 Year
  Sex: Female
  Weight: 66 kg

DRUGS (4)
  1. IBUPROFEN. [Concomitant]
     Active Substance: IBUPROFEN
     Indication: BACK PAIN
     Dosage: 200 MG, AS NEEDED
     Dates: start: 1993
  2. LIPITOR [Suspect]
     Active Substance: ATORVASTATIN CALCIUM
     Indication: BLOOD CHOLESTEROL INCREASED
     Dosage: 10 MG, DAILY
     Route: 048
     Dates: end: 201207
  3. WOMEN^S ONE DAY [Concomitant]
     Indication: ASTHENIA
     Dosage: 1 DF, DAILY (PILL)
     Dates: start: 1995
  4. WOMEN^S ONE DAY [Concomitant]
     Indication: ROUTINE HEALTH MAINTENANCE

REACTIONS (3)
  - Urinary tract infection [Unknown]
  - Type 2 diabetes mellitus [Not Recovered/Not Resolved]
  - Tinea pedis [Unknown]

NARRATIVE: CASE EVENT DATE: 201008
